FAERS Safety Report 7204146-4 (Version None)
Quarter: 2010Q4

REPORT INFORMATION
  Report Type: 
  Country: None (occurrence: None)
  Receive Date: 20101230
  Receipt Date: 20101222
  Transmission Date: 20110411
  Serious: Yes (Other)
  Sender: FDA-Public Use
  Company Number: US-ROCHE-741558

PATIENT
  Sex: Female
  Weight: 99.8 kg

DRUGS (6)
  1. AVASTIN [Suspect]
     Dosage: 970 MG
     Route: 042
     Dates: start: 20101013
  2. PACLITAXEL [Suspect]
     Dosage: FREQUENCY: 3 WEEKS ON 1 WEEK OFF
     Route: 042
  3. ZOMETA [Concomitant]
  4. LUNESTA [Concomitant]
  5. JANUMET [Concomitant]
  6. COREG [Concomitant]

REACTIONS (1)
  - RETINAL HAEMORRHAGE [None]
